FAERS Safety Report 23910007 (Version 2)
Quarter: 2024Q2

REPORT INFORMATION
  Report Type: Spontaneous
  Country: US (occurrence: US)
  Receive Date: 20240528
  Receipt Date: 20240528
  Transmission Date: 20240715
  Serious: No
  Sender: FDA-Public Use
  Company Number: US-PFIZER INC-202400175917

PATIENT

DRUGS (1)
  1. XELJANZ [Suspect]
     Active Substance: TOFACITINIB CITRATE
     Dosage: 3.2 ML, 2X/DAY
     Route: 048
     Dates: start: 20221223

REACTIONS (2)
  - Illness [Recovered/Resolved]
  - Gastrointestinal disorder [Recovered/Resolved]
